FAERS Safety Report 9606678 (Version 1)
Quarter: 2013Q4

REPORT INFORMATION
  Report Type: Spontaneous
  Country: US (occurrence: US)
  Receive Date: 20131008
  Receipt Date: 20131008
  Transmission Date: 20140711
  Serious: No
  Sender: FDA-Public Use
  Company Number: US-AMGEN-USASP2013065823

PATIENT
  Age: 71 Year
  Sex: Female

DRUGS (1)
  1. PROLIA [Suspect]
     Indication: BONE LOSS
     Dosage: UNK
     Route: 065
     Dates: start: 201307

REACTIONS (8)
  - Joint swelling [Unknown]
  - Dyspnoea [Unknown]
  - Pain [Unknown]
  - Muscle spasms [Unknown]
  - Sleep disorder [Unknown]
  - Screaming [Unknown]
  - Back pain [Unknown]
  - Pain in extremity [Unknown]
